FAERS Safety Report 6444693-6 (Version None)
Quarter: 2009Q4

REPORT INFORMATION
  Report Type: 
  Country: None (occurrence: None)
  Receive Date: 20091118
  Receipt Date: 20091112
  Transmission Date: 20100525
  Serious: Yes (Hospitalization)
  Sender: FDA-Public Use
  Company Number: A0730956A

PATIENT
  Age: 64 Year
  Sex: Female
  Weight: 90.9 kg

DRUGS (8)
  1. AVANDIA [Suspect]
     Dosage: 8MG PER DAY
     Route: 048
     Dates: start: 19990101, end: 20070101
  2. INSULIN [Concomitant]
  3. ATACAND [Concomitant]
  4. DEMADEX [Concomitant]
  5. CRESTOR [Concomitant]
  6. COREG [Concomitant]
  7. TORSEMIDE [Concomitant]
  8. NEXIUM [Concomitant]

REACTIONS (4)
  - ARTERIAL OCCLUSIVE DISEASE [None]
  - CARDIAC FAILURE CONGESTIVE [None]
  - INJURY [None]
  - PAIN [None]
